FAERS Safety Report 19588427 (Version 1)
Quarter: 2021Q3

REPORT INFORMATION
  Report Type: Spontaneous
  Country: US (occurrence: US)
  Receive Date: 20210721
  Receipt Date: 20210721
  Transmission Date: 20211014
  Serious: Yes (Other)
  Sender: FDA-Public Use
  Company Number: US-ACCORD-232301

PATIENT
  Sex: Female

DRUGS (1)
  1. EZETIMIBE?ACCORD [Suspect]
     Active Substance: EZETIMIBE
     Indication: PRODUCT USED FOR UNKNOWN INDICATION

REACTIONS (1)
  - Coeliac disease [Unknown]
